FAERS Safety Report 7530748-1 (Version None)
Quarter: 2011Q2

REPORT INFORMATION
  Report Type: 
  Country: None (occurrence: None)
  Receive Date: 20110607
  Receipt Date: 20110602
  Transmission Date: 20111010
  Serious: Yes (Hospitalization)
  Sender: FDA-Public Use
  Company Number: US-ABBOTT-11P-163-0727658-00

PATIENT
  Sex: Female
  Weight: 55.842 kg

DRUGS (11)
  1. HUMIRA [Suspect]
     Indication: CROHN'S DISEASE
     Dosage: LOADING DOSE ONLY
     Dates: start: 20110517, end: 20110517
  2. PHERGAN [Concomitant]
     Indication: PRODUCT USED FOR UNKNOWN INDICATION
  3. ATIVAN [Concomitant]
     Indication: PRODUCT USED FOR UNKNOWN INDICATION
     Dosage: 0.5MG 1 TAB TID WITH PREDNISONE
  4. ANTIDIARRHEAL [Concomitant]
     Indication: DIARRHOEA
     Dosage: OTC
  5. PREDNISONE [Concomitant]
     Dosage: 40MG FOR 5 DAYS THEN D/C
  6. POTASSIUM CHLORIDE [Concomitant]
     Indication: BLOOD POTASSIUM DECREASED
  7. PREDNISONE [Concomitant]
     Indication: PRODUCT USED FOR UNKNOWN INDICATION
     Dosage: 50MG, 5 10MG TABLET DAILY
  8. OMEPRAZOLE [Concomitant]
     Indication: GASTROOESOPHAGEAL REFLUX DISEASE
  9. LORACET 10 [Concomitant]
     Indication: PRODUCT USED FOR UNKNOWN INDICATION
     Dosage: 1/2 A TAB, PRN
  10. CELEXA [Concomitant]
     Indication: DEPRESSION
  11. CHLORACON M10 [Concomitant]
     Indication: PRODUCT USED FOR UNKNOWN INDICATION

REACTIONS (4)
  - OVARIAN CYST [None]
  - COUGH [None]
  - PAIN [None]
  - SPUTUM DISCOLOURED [None]
